FAERS Safety Report 5520343-8 (Version None)
Quarter: 2007Q4

REPORT INFORMATION
  Report Type: 
  Country: None (occurrence: None)
  Receive Date: 20071116
  Receipt Date: 20071116
  Transmission Date: 20080405
  Serious: Yes (Other)
  Sender: FDA-Public Use
  Company Number: None

PATIENT
  Sex: Male

DRUGS (1)
  1. FOSAMAX [Suspect]
     Indication: OSTEOPOROSIS
     Dosage: WEEKLY ORAL
     Route: 048
     Dates: start: 20031201, end: 20061201

REACTIONS (4)
  - FACIAL PAIN [None]
  - ORAL PAIN [None]
  - OSTEOMYELITIS [None]
  - TOOTH INFECTION [None]
